FAERS Safety Report 14174064 (Version 1)
Quarter: 2017Q4

REPORT INFORMATION
  Report Type: Spontaneous
  Country: US (occurrence: None)
  Receive Date: 20171109
  Receipt Date: 20171109
  Transmission Date: 20180321
  Serious: Yes (Other)
  Sender: FDA-Public Use
  Company Number: None

PATIENT
  Age: 63 Year
  Sex: Male
  Weight: 100.7 kg

DRUGS (7)
  1. MIRACLE MULTIVITAMIN [Concomitant]
  2. COQ10 [Concomitant]
     Active Substance: UBIDECARENONE
  3. LISINOPRIL. [Concomitant]
     Active Substance: LISINOPRIL
  4. FISH OIL [Concomitant]
     Active Substance: FISH OIL
  5. METFORMIN HCL ER 500MG IC METFORMIN HCL [Suspect]
     Active Substance: METFORMIN HYDROCHLORIDE
     Indication: TYPE 2 DIABETES MELLITUS
     Dosage: 1 TABLET/DAY  1 DAILY @ BREAKFAST BY MOUTH
     Route: 048
     Dates: start: 20170805, end: 20170826
  6. L-CARNITINE [Concomitant]
     Active Substance: LEVOCARNITINE
  7. BETAMETHASONE. [Concomitant]
     Active Substance: BETAMETHASONE

REACTIONS (9)
  - Acne [None]
  - Photosensitivity reaction [None]
  - Skin discolouration [None]
  - Rash erythematous [None]
  - Rash [None]
  - Skin exfoliation [None]
  - Skin infection [None]
  - Heavy exposure to ultraviolet light [None]
  - Inflammation [None]

NARRATIVE: CASE EVENT DATE: 20170805
